FAERS Safety Report 5892595-6 (Version None)
Quarter: 2008Q3

REPORT INFORMATION
  Report Type: 
  Country: None (occurrence: None)
  Receive Date: 20080923
  Receipt Date: 20080912
  Transmission Date: 20090109
  Serious: Yes (Other)
  Sender: FDA-Public Use
  Company Number: US-BAYER-200811952BCC

PATIENT
  Age: 78 Year
  Sex: Female
  Weight: 43 kg

DRUGS (1)
  1. ASPIRIN [Suspect]
     Indication: ANALGESIA
     Route: 048
     Dates: start: 20030101

REACTIONS (2)
  - CEREBROVASCULAR ACCIDENT [None]
  - NAUSEA [None]
